FAERS Safety Report 15230877 (Version 4)
Quarter: 2018Q4

REPORT INFORMATION
  Report Type: Report from Study
  Country: US (occurrence: US)
  Receive Date: 20180802
  Receipt Date: 20181001
  Transmission Date: 20190204
  Serious: Yes (Other)
  Sender: FDA-Public Use
  Company Number: US-AMGEN-USASP2018104402

PATIENT
  Age: 8 Year
  Sex: Female
  Weight: 21.1 kg

DRUGS (14)
  1. ENBREL [Suspect]
     Active Substance: ETANERCEPT
     Dosage: 0.7 ML, QWK
     Route: 058
     Dates: start: 20180808, end: 20180907
  2. PROBIOTIC [Concomitant]
     Active Substance: PROBIOTICS NOS
  3. ENBREL [Suspect]
     Active Substance: ETANERCEPT
     Dosage: 0.7 ML, QWK
     Route: 058
     Dates: start: 201802, end: 20180727
  4. VITAMIN C [Concomitant]
     Active Substance: ASCORBIC ACID
  5. IRON [Concomitant]
     Active Substance: IRON
     Dosage: UNK, EVERY OTHER DAY
  6. VITAMIN A [Concomitant]
     Active Substance: VITAMIN A
  7. QUERCETIN [Concomitant]
     Active Substance: QUERCETIN
  8. VITAMIN B12 [Concomitant]
     Active Substance: CYANOCOBALAMIN
  9. COD LIVER OIL [Concomitant]
     Active Substance: COD LIVER OIL
  10. VITAMIN D [Concomitant]
     Active Substance: CHOLECALCIFEROL
  11. ENBREL [Suspect]
     Active Substance: ETANERCEPT
     Indication: JUVENILE IDIOPATHIC ARTHRITIS
     Dosage: 0.7 ML, QWK
     Route: 058
     Dates: start: 20140929, end: 2017
  12. TURMERIC [Concomitant]
     Active Substance: HERBALS\TURMERIC
  13. GLUTATHIONE [Concomitant]
     Active Substance: GLUTATHIONE
  14. ACETYL LEUCOMYCIN [Concomitant]

REACTIONS (3)
  - Product storage error [Unknown]
  - Juvenile idiopathic arthritis [Not Recovered/Not Resolved]
  - Product dose omission [Unknown]

NARRATIVE: CASE EVENT DATE: 20180727
